FAERS Safety Report 5809610-8 (Version None)
Quarter: 2008Q3

REPORT INFORMATION
  Report Type: 
  Country: None (occurrence: None)
  Receive Date: 20080715
  Receipt Date: 20080707
  Transmission Date: 20090109
  Serious: Yes (Other)
  Sender: FDA-Public Use
  Company Number: US-ROCHE-574575

PATIENT
  Sex: Male

DRUGS (2)
  1. PEG-INTERFERON A-2A (RO 25-8310) [Suspect]
     Dosage: FORM REPORTED AS: PREFILLED SYRINGE
     Route: 065
     Dates: start: 20080501
  2. RIBAVIRIN [Suspect]
     Route: 065
     Dates: start: 20080501

REACTIONS (2)
  - CATARACT [None]
  - EYE HAEMORRHAGE [None]
